FAERS Safety Report 24422970 (Version 1)
Quarter: 2024Q4

REPORT INFORMATION
  Report Type: Spontaneous
  Country: US (occurrence: US)
  Receive Date: 20241010
  Receipt Date: 20241010
  Transmission Date: 20250115
  Serious: Yes (Other)
  Sender: GLAXOSMITHKLINE
  Company Number: US-GSKCCFUS-Case-02119539_AE-116911

PATIENT

DRUGS (1)
  1. BENLYSTA [Suspect]
     Active Substance: BELIMUMAB
     Indication: Systemic lupus erythematosus
     Dosage: UNK
     Route: 058

REACTIONS (6)
  - Skin cancer [Unknown]
  - Dyspnoea [Unknown]
  - Blood pressure increased [Unknown]
  - Asthenia [Unknown]
  - Somnolence [Unknown]
  - Illness [Unknown]
